FAERS Safety Report 19096740 (Version 1)
Quarter: 2021Q2

REPORT INFORMATION
  Report Type: Spontaneous
  Country: US (occurrence: US)
  Receive Date: 20210405
  Receipt Date: 20210405
  Transmission Date: 20210717
  Serious: No
  Sender: FDA-Public Use
  Company Number: None

PATIENT
  Age: 65 Year
  Sex: Male

DRUGS (1)
  1. ABIRATERONE TAB [Suspect]
     Active Substance: ABIRATERONE
     Indication: PROSTATE CANCER
     Route: 048
     Dates: start: 202002

REACTIONS (5)
  - Metastases to spine [None]
  - Loss of consciousness [None]
  - Metastases to central nervous system [None]
  - Off label use [None]
  - Pain in extremity [None]

NARRATIVE: CASE EVENT DATE: 20210315
